FAERS Safety Report 6604750-8 (Version None)
Quarter: 2010Q1

REPORT INFORMATION
  Report Type: 
  Country: None (occurrence: None)
  Receive Date: 20100226
  Receipt Date: 20100115
  Transmission Date: 20100710
  Serious: No
  Sender: FDA-Public Use
  Company Number: US-BRISTOL-MYERS SQUIBB COMPANY-14890586

PATIENT
  Age: 65 Year
  Sex: Female

DRUGS (2)
  1. ONGLYZA [Suspect]
     Dates: start: 20090901
  2. SYNTHROID [Concomitant]
     Dosage: 1DF=75[UNITS NI]

REACTIONS (4)
  - ABDOMINAL DISTENSION [None]
  - ABDOMINAL PAIN [None]
  - DIZZINESS [None]
  - NAUSEA [None]
